FAERS Safety Report 7212612-0 (Version None)
Quarter: 2010Q4

REPORT INFORMATION
  Report Type: 
  Country: None (occurrence: None)
  Receive Date: 20101229
  Receipt Date: 20101214
  Transmission Date: 20110411
  Serious: Yes (Other)
  Sender: FDA-Public Use
  Company Number: 012467

PATIENT
  Age: 64 Year

DRUGS (2)
  1. BUSULFEX (BUSULFAN) INJECTION [Suspect]
     Indication: STEM CELL TRANSPLANT
  2. FLUDARABINE PHOSPHATE [Concomitant]

REACTIONS (3)
  - ACUTE MYELOID LEUKAEMIA RECURRENT [None]
  - PORTAL VEIN THROMBOSIS [None]
  - THROMBOTIC MICROANGIOPATHY [None]
